FAERS Safety Report 6571094-2 (Version None)
Quarter: 2010Q1

REPORT INFORMATION
  Report Type: 
  Country: None (occurrence: None)
  Receive Date: 20100204
  Receipt Date: 20100128
  Transmission Date: 20100710
  Serious: Yes (Hospitalization, Other)
  Sender: FDA-Public Use
  Company Number: BR-ABBOTT-09P-020-0612038-00

PATIENT
  Sex: Male
  Weight: 61.3 kg

DRUGS (4)
  1. HUMIRA [Suspect]
     Indication: CROHN'S DISEASE
     Dosage: 160 MG LOADING DOSE
     Route: 058
     Dates: start: 20091001, end: 20091001
  2. HUMIRA [Suspect]
     Route: 058
     Dates: start: 20091001, end: 20091001
  3. HUMIRA [Suspect]
     Dosage: 160 MG LOADING DOSE
     Route: 058
     Dates: start: 20100127, end: 20100127
  4. CORTISONE [Concomitant]
     Indication: PAIN
     Route: 048
     Dates: start: 20090601

REACTIONS (3)
  - FATIGUE [None]
  - FISTULA DISCHARGE [None]
  - GASTROINTESTINAL FISTULA [None]
